FAERS Safety Report 4288176-0 (Version None)
Quarter: 2004Q1

REPORT INFORMATION
  Report Type: 
  Country: None (occurrence: None)
  Receive Date: 20040209
  Receipt Date: 20030829
  Transmission Date: 20041129
  Serious: No
  Sender: FDA-Public Use
  Company Number: US-GLAXOSMITHKLINE-A0424185A

PATIENT
  Sex: Female

DRUGS (1)
  1. PAXIL [Suspect]
     Dates: start: 20030701

REACTIONS (5)
  - DIZZINESS [None]
  - GAIT DISTURBANCE [None]
  - INSOMNIA [None]
  - TREMOR [None]
  - VISUAL DISTURBANCE [None]
